FAERS Safety Report 23291253 (Version 2)
Quarter: 2023Q4

REPORT INFORMATION
  Report Type: Spontaneous
  Country: JP (occurrence: None)
  Receive Date: 20231213
  Receipt Date: 20231219
  Transmission Date: 20240110
  Serious: No
  Sender: FDA-Public Use
  Company Number: 2023A278762

PATIENT
  Sex: Male

DRUGS (3)
  1. LYNPARZA [Suspect]
     Active Substance: OLAPARIB
     Indication: Hormone-refractory prostate cancer
     Dosage: NUMBER OF SEPARATE DOSAGES UNKNOWN 600.0MG UNKNOWN
     Route: 048
  2. LYNPARZA [Suspect]
     Active Substance: OLAPARIB
     Indication: Hormone-refractory prostate cancer
     Dosage: NUMBER OF SEPARATE DOSAGES UNKNOWN 300.0MG UNKNOWN
     Route: 048
  3. LYNPARZA [Suspect]
     Active Substance: OLAPARIB
     Indication: Hormone-refractory prostate cancer
     Dosage: NUMBER OF SEPARATE DOSAGES UNKNOWN 600.0MG UNKNOWN
     Route: 048

REACTIONS (1)
  - No adverse event [Unknown]
